FAERS Safety Report 13039346 (Version 1)
Quarter: 2016Q4

REPORT INFORMATION
  Report Type: Spontaneous
  Country: US (occurrence: US)
  Receive Date: 20161216
  Receipt Date: 20161216
  Transmission Date: 20170207
  Serious: Yes (Hospitalization, Other)
  Sender: FDA-Public Use
  Company Number: None

PATIENT
  Age: 36 Year
  Sex: Male
  Weight: 66.6 kg

DRUGS (1)
  1. ZOLOFT [Suspect]
     Active Substance: SERTRALINE HYDROCHLORIDE
     Indication: DEPRESSION
     Dates: start: 20090801, end: 20110921

REACTIONS (6)
  - Anger [None]
  - Nightmare [None]
  - Anxiety [None]
  - Mood altered [None]
  - Hyperreflexia [None]
  - Aggression [None]

NARRATIVE: CASE EVENT DATE: 20091010
